FAERS Safety Report 13194237 (Version 4)
Quarter: 2017Q2

REPORT INFORMATION
  Report Type: Spontaneous
  Country: AU (occurrence: AU)
  Receive Date: 20170207
  Receipt Date: 20170413
  Transmission Date: 20170830
  Serious: Yes (Hospitalization)
  Sender: FDA-Public Use
  Company Number: AU-SA-2017SA015481

PATIENT
  Age: 59 Year
  Sex: Female

DRUGS (8)
  1. NOTEN [Concomitant]
     Active Substance: ATENOLOL
     Dosage: ? TWICE A DAY
  2. TARGIN [Concomitant]
     Active Substance: NALOXONE HYDROCHLORIDE\OXYCODONE HYDROCHLORIDE
     Dosage: 1 TWICE A DAY IN WEBSTER PACK
  3. PAROXETINE. [Concomitant]
     Active Substance: PAROXETINE
     Dosage: 2 DAILY
  4. SOMAC [Concomitant]
     Active Substance: PANTOPRAZOLE SODIUM
     Dosage: 1 IN THE MORNING
  5. LEMTRADA [Suspect]
     Active Substance: ALEMTUZUMAB
     Indication: MULTIPLE SCLEROSIS
     Route: 042
     Dates: end: 20160515
  6. ENDONE [Concomitant]
     Active Substance: OXYCODONE HYDROCHLORIDE
     Dosage: 5 MG TABLET; 1-2 TAB UPTO 3 TIMES A DAY WHEN NEEDED
  7. PERINDO [Concomitant]
     Active Substance: PERINDOPRIL
     Dosage: 1 IN THE MORNING
  8. VALIUM [Concomitant]
     Active Substance: DIAZEPAM
     Dosage: 1 BEFORE BED PRN

REACTIONS (13)
  - Tremor [Recovered/Resolved]
  - Headache [Recovered/Resolved]
  - Lethargy [Recovered/Resolved]
  - Chills [Recovered/Resolved]
  - Haematuria [Unknown]
  - Back pain [Recovered/Resolved]
  - Pyuria [Unknown]
  - Hypotension [Recovered/Resolved]
  - Urinary tract infection [Unknown]
  - Musculoskeletal stiffness [Unknown]
  - Myalgia [Unknown]
  - Pyrexia [Recovered/Resolved]
  - Gait disturbance [Recovered/Resolved]
